FAERS Safety Report 5023344-1 (Version None)
Quarter: 2006Q2

REPORT INFORMATION
  Report Type: 
  Country: None (occurrence: None)
  Receive Date: 20060530
  Receipt Date: 20060524
  Transmission Date: 20061013
  Serious: Yes (Life-Threatening, Hospitalization)
  Sender: FDA-Public Use
  Company Number: 200610150BBE

PATIENT
  Age: 30 Year
  Sex: Female
  Weight: 80.7403 kg

DRUGS (13)
  1. GAMUNEX [Suspect]
     Indication: FOETAL DISORDER
     Dosage: SEE IMAGE
     Route: 042
     Dates: start: 20060421, end: 20060428
  2. GAMUNEX [Suspect]
     Indication: THROMBOCYTOPENIA
     Dosage: SEE IMAGE
     Route: 042
     Dates: start: 20060421, end: 20060428
  3. GAMUNEX [Suspect]
     Indication: FOETAL DISORDER
     Dosage: SEE IMAGE
     Route: 042
     Dates: start: 20060509, end: 20060512
  4. GAMUNEX [Suspect]
     Indication: THROMBOCYTOPENIA
     Dosage: SEE IMAGE
     Route: 042
     Dates: start: 20060509, end: 20060512
  5. GAMUNEX [Suspect]
     Indication: FOETAL DISORDER
     Dosage: SEE IMAGE
     Route: 042
     Dates: start: 20060506
  6. GAMUNEX [Suspect]
     Indication: THROMBOCYTOPENIA
     Dosage: SEE IMAGE
     Route: 042
     Dates: start: 20060506
  7. GAMUNEX [Suspect]
     Indication: FOETAL DISORDER
     Dosage: SEE IMAGE
     Route: 042
     Dates: start: 20060513
  8. GAMUNEX [Suspect]
     Indication: THROMBOCYTOPENIA
     Dosage: SEE IMAGE
     Route: 042
     Dates: start: 20060513
  9. GAMUNEX [Suspect]
     Indication: FOETAL DISORDER
     Dosage: SEE IMAGE
     Route: 042
     Dates: start: 20060517
  10. GAMUNEX [Suspect]
     Indication: THROMBOCYTOPENIA
     Dosage: SEE IMAGE
     Route: 042
     Dates: start: 20060517
  11. GAMUNEX [Suspect]
     Indication: FOETAL DISORDER
     Dosage: SEE IMAGE
     Route: 042
     Dates: start: 20060522
  12. GAMUNEX [Suspect]
     Indication: THROMBOCYTOPENIA
     Dosage: SEE IMAGE
     Route: 042
     Dates: start: 20060522
  13. GAMUNEX [Suspect]

REACTIONS (11)
  - BACK PAIN [None]
  - CHEST PAIN [None]
  - CHILLS [None]
  - DIZZINESS [None]
  - DRUG EXPOSURE DURING PREGNANCY [None]
  - DYSPNOEA [None]
  - MYALGIA [None]
  - NAUSEA [None]
  - NECK PAIN [None]
  - RESTLESSNESS [None]
  - VOMITING [None]
